FAERS Safety Report 9325075 (Version 1)
Quarter: 2013Q2

REPORT INFORMATION
  Report Type: Spontaneous
  Country: AU (occurrence: None)
  Receive Date: 20130530
  Receipt Date: 20130530
  Transmission Date: 20140414
  Serious: Yes (Other)
  Sender: FDA-Public Use
  Company Number: 2013AP005539

PATIENT
  Sex: Male

DRUGS (2)
  1. ALLOPURINOL [Suspect]
  2. PROGOUT (ALLOPURINOL) [Concomitant]

REACTIONS (2)
  - Nephrolithiasis [None]
  - Product substitution issue [None]
